FAERS Safety Report 8984935 (Version 1)
Quarter: 2012Q4

REPORT INFORMATION
  Report Type: 
  Country: US (occurrence: US)
  Receive Date: 20121225
  Receipt Date: 20121225
  Transmission Date: 20130627
  Serious: Yes (Other)
  Sender: FDA-Public Use
  Company Number: US-AMGEN-USASP2012081056

PATIENT
  Sex: Female

DRUGS (14)
  1. PROLIA [Suspect]
     Indication: OSTEOPOROSIS POSTMENOPAUSAL
     Dosage: 60 mg, q6mo
     Dates: start: 201112
  2. VITAMIN D /00107901/ [Concomitant]
     Dosage: 4000 unit, UNK
  3. ARMOUR THYROID [Concomitant]
     Dosage: 30 mg, UNK
     Dates: start: 201210
  4. CALCIUM COMPLEX                    /02226301/ [Concomitant]
  5. MAGNESIUM [Concomitant]
  6. OMEGA-6 FATTY ACIDS [Concomitant]
  7. B COMPLEX                          /00212701/ [Concomitant]
  8. VITAMIN C                          /00008001/ [Concomitant]
  9. PEPSIN [Concomitant]
  10. CHROMIUM GTF [Concomitant]
  11. BIOSIL [Concomitant]
  12. TYROSINE [Concomitant]
  13. ESTROGEN [Concomitant]
  14. CELEXA                             /00582602/ [Concomitant]
     Dosage: UNK
     Dates: start: 2012

REACTIONS (27)
  - Presyncope [Unknown]
  - Depression [Unknown]
  - Irritability [Unknown]
  - Confusional state [Unknown]
  - Muscle spasms [Unknown]
  - Mood swings [Unknown]
  - Paraesthesia [Unknown]
  - Infection [Unknown]
  - Malabsorption [Unknown]
  - Dizziness [Unknown]
  - Memory impairment [Unknown]
  - Anxiety [Unknown]
  - Stress [Unknown]
  - Feeling hot [Unknown]
  - Hot flush [Unknown]
  - Alopecia [Unknown]
  - Vitamin D increased [Unknown]
  - Vitamin B12 increased [Unknown]
  - Flatulence [Unknown]
  - Feeling hot [Unknown]
  - Asthenia [Unknown]
  - Crying [Unknown]
  - Bowel movement irregularity [Unknown]
  - Tremor [Unknown]
  - Rash papular [Recovered/Resolved]
  - Skin exfoliation [Unknown]
  - Feeling abnormal [Unknown]
